FAERS Safety Report 21888938 (Version 16)
Quarter: 2024Q2

REPORT INFORMATION
  Report Type: Report from Study
  Country: CA (occurrence: CA)
  Receive Date: 20230120
  Receipt Date: 20240404
  Transmission Date: 20240716
  Serious: Yes (Hospitalization, Other)
  Sender: FDA-Public Use
  Company Number: CA-002147023-NVSC2022CA302161

PATIENT
  Age: 69 Year
  Sex: Male

DRUGS (5)
  1. SANDOSTATIN LAR DEPOT [Suspect]
     Active Substance: OCTREOTIDE ACETATE
     Indication: Carcinoid tumour
     Dosage: 30 MG, Q4W
     Route: 030
     Dates: start: 20211123
  2. SANDOSTATIN LAR DEPOT [Suspect]
     Active Substance: OCTREOTIDE ACETATE
     Dosage: UNK
     Route: 065
     Dates: start: 200308
  3. SANDOSTATIN LAR DEPOT [Suspect]
     Active Substance: OCTREOTIDE ACETATE
     Dosage: UNK
     Route: 065
     Dates: start: 2023
  4. RAMIPRIL [Concomitant]
     Active Substance: RAMIPRIL
     Indication: Product used for unknown indication
     Dosage: UNK
     Route: 048
  5. MORPHINE [Concomitant]
     Active Substance: MORPHINE
     Indication: Product used for unknown indication
     Dosage: UNK
     Route: 065

REACTIONS (26)
  - Neuropathy peripheral [Unknown]
  - Neuralgia [Unknown]
  - Pain in extremity [Unknown]
  - Peripheral swelling [Recovering/Resolving]
  - Burning sensation [Unknown]
  - Herpes zoster [Unknown]
  - Pneumonia [Unknown]
  - Pain [Unknown]
  - Injection site pain [Unknown]
  - Pharyngitis streptococcal [Unknown]
  - Malaise [Recovering/Resolving]
  - Fatigue [Unknown]
  - Illness [Unknown]
  - Ulcer [Unknown]
  - Fall [Unknown]
  - Oropharyngeal pain [Unknown]
  - Nausea [Recovered/Resolved]
  - Injection site swelling [Recovering/Resolving]
  - Infection [Unknown]
  - Injection site discomfort [Not Recovered/Not Resolved]
  - Rash [Unknown]
  - Headache [Unknown]
  - Tremor [Unknown]
  - Helicobacter gastritis [Unknown]
  - Abdominal pain upper [Unknown]
  - Product administered at inappropriate site [Unknown]

NARRATIVE: CASE EVENT DATE: 20221201
